FAERS Safety Report 7372051-9 (Version None)
Quarter: 2011Q1

REPORT INFORMATION
  Report Type: 
  Country: None (occurrence: None)
  Receive Date: 20110324
  Receipt Date: 20110309
  Transmission Date: 20110831
  Serious: Yes (Hospitalization, Other)
  Sender: FDA-Public Use
  Company Number: PHHY2010DE48388

PATIENT
  Sex: Male

DRUGS (1)
  1. GLEEVEC [Suspect]
     Indication: GASTROINTESTINAL STROMAL TUMOUR
     Dosage: 400 MG, DAILY
     Route: 048
     Dates: start: 20091217, end: 20100723

REACTIONS (6)
  - COUGH [None]
  - BRONCHITIS [None]
  - LYMPHADENOPATHY [None]
  - ASTHMA [None]
  - BRONCHIAL OEDEMA [None]
  - TRACHEOBRONCHIAL DYSKINESIA [None]
